FAERS Safety Report 7246073-2 (Version None)
Quarter: 2011Q1

REPORT INFORMATION
  Report Type: 
  Country: None (occurrence: None)
  Receive Date: 20110126
  Receipt Date: 20110121
  Transmission Date: 20110831
  Serious: Yes (Other)
  Sender: FDA-Public Use
  Company Number: A0794746A

PATIENT
  Age: 70 Year
  Sex: Male
  Weight: 113.2 kg

DRUGS (1)
  1. AVANDIA [Suspect]
     Dosage: 8MG PER DAY
     Route: 048
     Dates: start: 19990816

REACTIONS (2)
  - BLINDNESS [None]
  - MACULAR OEDEMA [None]
